FAERS Safety Report 6446900-2 (Version None)
Quarter: 2009Q4

REPORT INFORMATION
  Report Type: 
  Country: None (occurrence: None)
  Receive Date: 20091119
  Receipt Date: 20091020
  Transmission Date: 20100525
  Serious: No
  Sender: FDA-Public Use
  Company Number: US-BAYER-200915877BCC

PATIENT
  Age: 37 Year
  Sex: Female
  Weight: 68 kg

DRUGS (5)
  1. ALEVE (CAPLET) [Suspect]
     Indication: INFLAMMATION
     Dosage: TOTAL DAILY DOSE: 440 MG  UNIT DOSE: 220 MG
     Route: 048
     Dates: start: 20091011, end: 20091012
  2. ALEVE (CAPLET) [Suspect]
     Dosage: TOTAL DAILY DOSE: 220 MG  UNIT DOSE: 220 MG
     Route: 048
     Dates: start: 20091013, end: 20091017
  3. SPRINTEC [Concomitant]
     Route: 065
  4. LEXAPRO [Concomitant]
     Route: 065
  5. ACYCLOVIR [Concomitant]
     Route: 065

REACTIONS (2)
  - PRURITUS [None]
  - URTICARIA [None]
